FAERS Safety Report 25003856 (Version 1)
Quarter: 2025Q1

REPORT INFORMATION
  Report Type: Spontaneous
  Country: US (occurrence: None)
  Receive Date: 20250221
  Receipt Date: 20250221
  Transmission Date: 20250409
  Serious: Yes (Hospitalization, Other)
  Sender: FDA-CTU
  Company Number: None

PATIENT
  Age: 73 Year
  Sex: Male

DRUGS (1)
  1. POMALYST [Suspect]
     Active Substance: POMALIDOMIDE
     Indication: Plasma cell myeloma
     Dosage: FREQUENCY : DAILY;?
     Route: 048
     Dates: start: 20240513

REACTIONS (7)
  - Infection [None]
  - Adverse drug reaction [None]
  - Pancytopenia [None]
  - Diarrhoea [None]
  - Influenza [None]
  - Respiratory syncytial virus infection [None]
  - Pneumonia [None]

NARRATIVE: CASE EVENT DATE: 20250131
